FAERS Safety Report 26173992 (Version 1)
Quarter: 2025Q4

REPORT INFORMATION
  Report Type: Spontaneous
  Country: US (occurrence: US)
  Receive Date: 20251218
  Receipt Date: 20251218
  Transmission Date: 20260118
  Serious: No
  Sender: ALVOGEN
  Company Number: US-ALVOGEN-2025096425

PATIENT
  Sex: Male

DRUGS (3)
  1. FENTANYL [Suspect]
     Active Substance: FENTANYL
     Indication: Back pain
     Dosage: STRENGTH: 25 MCG/HR
     Route: 062
  2. FENTANYL [Suspect]
     Active Substance: FENTANYL
     Indication: Back pain
     Dosage: STRENGTH: 25 MCG/HR ?LAST REFILL IN DEC
     Route: 062
     Dates: start: 2024
  3. ADVAIR HFA [Concomitant]
     Active Substance: FLUTICASONE PROPIONATE\SALMETEROL XINAFOATE
     Indication: Asthma

REACTIONS (7)
  - Device physical property issue [Unknown]
  - Device malfunction [Unknown]
  - Device defective [Unknown]
  - Device use issue [Unknown]
  - Manufacturing issue [Unknown]
  - Wrong technique in device usage process [Unknown]
  - No adverse event [Unknown]

NARRATIVE: CASE EVENT DATE: 20240101
